FAERS Safety Report 15864613 (Version 1)
Quarter: 2019Q1

REPORT INFORMATION
  Report Type: Spontaneous
  Country: FR (occurrence: FR)
  Receive Date: 20190124
  Receipt Date: 20190124
  Transmission Date: 20190417
  Serious: Yes (Hospitalization)
  Sender: FDA-Public Use
  Company Number: PHHY2019FR012966

PATIENT
  Age: 86 Year
  Sex: Female
  Weight: 92 kg

DRUGS (8)
  1. KARDEGIC [Suspect]
     Active Substance: ASPIRIN DL-LYSINE
     Indication: THROMBOSIS PROPHYLAXIS
     Dosage: 75 MG, QD ( LE SOIR)
     Route: 048
     Dates: start: 20181115
  2. COAPROVEL [Suspect]
     Active Substance: HYDROCHLOROTHIAZIDE\IRBESARTAN
     Indication: HYPERTENSION
     Dosage: 1 ?G/L, QD
     Route: 048
     Dates: start: 20181115, end: 20181127
  3. RISPERDAL [Suspect]
     Active Substance: RISPERIDONE
     Indication: COGNITIVE DISORDER
     Dosage: 0.25 ML, QD (0.25 ML LE SOIR)
     Route: 048
     Dates: start: 20180912
  4. TARDYFERON B9 [FERROUS SULFATE;FOLIC ACID] [Suspect]
     Active Substance: FERROUS SULFATE\FOLIC ACID
     Indication: HYPOVITAMINOSIS
     Dosage: 1 ?G/L, QD (1 LE MATIN)
     Route: 048
     Dates: start: 20181115, end: 20181127
  5. LERCANIDIPINE [Suspect]
     Active Substance: LERCANIDIPINE
     Indication: HYPERTENSION
     Dosage: 10 MG, QD ( LE MATIN)
     Route: 048
     Dates: start: 20181115, end: 20181129
  6. SALBUTAMOL [Suspect]
     Active Substance: ALBUTEROL
     Indication: ASTHMA
     Dosage: 100 UG, UNK
     Route: 055
  7. FLUOXETIN [Suspect]
     Active Substance: FLUOXETINE HYDROCHLORIDE
     Indication: DEPRESSION
     Dosage: 40 MG, QD (LE MATIN)
     Route: 048
     Dates: start: 20181115
  8. PANTOPRAZOLE [Suspect]
     Active Substance: PANTOPRAZOLE
     Indication: PROPHYLAXIS AGAINST GASTROINTESTINAL ULCER
     Dosage: 20 MG, QD  (20 MG LE MATIN)
     Route: 048
     Dates: start: 20181115, end: 20181127

REACTIONS (2)
  - Dyspnoea [Recovered/Resolved]
  - Oedema peripheral [Recovered/Resolved]

NARRATIVE: CASE EVENT DATE: 20181115
